FAERS Safety Report 18945626 (Version 2)
Quarter: 2021Q1

REPORT INFORMATION
  Report Type: Spontaneous
  Country: DE (occurrence: DE)
  Receive Date: 20210226
  Receipt Date: 20210302
  Transmission Date: 20210420
  Serious: Yes (Hospitalization, Other)
  Sender: FDA-Public Use
  Company Number: DE-BIOGEN-2021BI00982510

PATIENT
  Age: 41 Year
  Sex: Female

DRUGS (1)
  1. PLEGRIDY [Suspect]
     Active Substance: PEGINTERFERON BETA-1A
     Indication: MULTIPLE SCLEROSIS
     Route: 058
     Dates: start: 202009

REACTIONS (4)
  - Foot deformity [Recovered/Resolved with Sequelae]
  - Appendicitis perforated [Recovered/Resolved]
  - Accident [Recovered/Resolved]
  - Facial bones fracture [Unknown]

NARRATIVE: CASE EVENT DATE: 202012
